FAERS Safety Report 5001719-4 (Version None)
Quarter: 2006Q2

REPORT INFORMATION
  Report Type: 
  Country: None (occurrence: None)
  Receive Date: 20060515
  Receipt Date: 20060316
  Transmission Date: 20061013
  Serious: Yes (Hospitalization)
  Sender: FDA-Public Use
  Company Number: CA-AMGEN-US172718

PATIENT
  Sex: Male
  Weight: 66.4 kg

DRUGS (14)
  1. ARANESP [Suspect]
     Indication: RENAL TRANSPLANT
     Route: 058
     Dates: start: 20051208, end: 20060301
  2. PROGRAF [Concomitant]
     Dates: start: 20050620
  3. PREDNISONE TAB [Concomitant]
     Dates: start: 20050620
  4. CELLCEPT [Concomitant]
     Dates: start: 20050620
  5. SEPTRA [Concomitant]
     Dates: start: 20050620
  6. LIPITOR [Concomitant]
     Dates: start: 20050620
  7. PANTOPRAZOLE SODIUM [Concomitant]
     Dates: start: 20050620
  8. IMOVANE [Concomitant]
     Dates: start: 20050620
  9. ZOLOFT [Concomitant]
     Dates: start: 20050620
  10. ZOFRAN [Concomitant]
  11. CYCLOPHOSPHAMIDE [Concomitant]
  12. DOXORUBICIN HCL [Concomitant]
  13. VINCRISTINE [Concomitant]
  14. RITUXAN [Concomitant]

REACTIONS (4)
  - HAEMOGLOBIN DECREASED [None]
  - LYMPHOPROLIFERATIVE DISORDER [None]
  - NORMOCHROMIC NORMOCYTIC ANAEMIA [None]
  - PYREXIA [None]
